FAERS Safety Report 9885305 (Version 1)
Quarter: 2014Q1

REPORT INFORMATION
  Report Type: Spontaneous
  Country: US (occurrence: None)
  Receive Date: 20140210
  Receipt Date: 20140210
  Transmission Date: 20141002
  Serious: Yes (Life-Threatening)
  Sender: FDA-Public Use
  Company Number: None

PATIENT
  Age: 6 Day
  Sex: Male
  Weight: 4.1 kg

DRUGS (1)
  1. CITRULLINE [Suspect]
     Dosage: 150-300MG Q6H PO
     Route: 048
     Dates: start: 20140114, end: 20140128

REACTIONS (4)
  - Ammonia increased [None]
  - Product compounding quality issue [None]
  - Drug level below therapeutic [None]
  - Drug ineffective [None]
